FAERS Safety Report 9838920 (Version 3)
Quarter: 2014Q1

REPORT INFORMATION
  Report Type: Spontaneous
  Country: JP (occurrence: JP)
  Receive Date: 20140123
  Receipt Date: 20140218
  Transmission Date: 20141002
  Serious: Yes (Death, Hospitalization, Other)
  Sender: FDA-Public Use
  Company Number: JP-BAYER-2014-011204

PATIENT
  Age: 56 Year
  Sex: Male
  Weight: 56 kg

DRUGS (9)
  1. ANTIHEMOPHILIC FACTOR VIII (RECOMBINANT), SUCROSE FORMULATED [Suspect]
     Indication: FACTOR VIII DEFICIENCY
     Dosage: 8000 U, BOLUS
     Route: 042
  2. ANTIHEMOPHILIC FACTOR VIII (RECOMBINANT), SUCROSE FORMULATED [Suspect]
     Indication: FACTOR VIII DEFICIENCY
     Dosage: 400 U/H CONTINUOUS
     Route: 042
  3. THIAMYLAL [Concomitant]
     Indication: ANAESTHESIA
  4. VECURONIUM [Concomitant]
     Indication: ANAESTHESIA
  5. SEVOFLURANE [Concomitant]
     Indication: ANAESTHESIA
  6. FACTOR VII [Concomitant]
     Indication: FACTOR VIII DEFICIENCY
  7. RED BLOOD CELLS, CONCENTRATED [Concomitant]
     Dosage: 1200 ML, UNK
  8. PLASMA, FRESH FROZEN [Concomitant]
     Dosage: 320 ML, UNK
  9. FIBRINOGEN [Concomitant]
     Dosage: 2 MG, UNK

REACTIONS (5)
  - Anti factor VIII antibody positive [None]
  - Haematemesis [Not Recovered/Not Resolved]
  - Shock haemorrhagic [None]
  - Haematemesis [None]
  - Hepatic failure [Fatal]
